FAERS Safety Report 9105547 (Version 2)
Quarter: 2013Q1

REPORT INFORMATION
  Report Type: Report from Study
  Country: IT (occurrence: IT)
  Receive Date: 20130220
  Receipt Date: 20130305
  Transmission Date: 20140127
  Serious: Yes (Death)
  Sender: FDA-Public Use
  Company Number: IT-ASTELLAS-2013EU001513

PATIENT
  Age: 63 Year
  Sex: Male
  Weight: 80 kg

DRUGS (9)
  1. MICAFUNGIN INJECTION [Suspect]
     Indication: PROPHYLAXIS
     Dosage: 100 MG, UID/QD
     Route: 042
     Dates: start: 20110918
  2. MICAFUNGIN INJECTION [Suspect]
     Indication: CANDIDA INFECTION
     Dosage: 100 MG, UID/QD
     Route: 042
     Dates: start: 20111103, end: 20111120
  3. TACROLIMUS [Concomitant]
     Indication: IMMUNOSUPPRESSION
     Dosage: UNK
     Route: 065
     Dates: start: 20110920
  4. NOREPINEPHRINE [Concomitant]
     Indication: HYPOTENSION
     Dosage: UNK
     Route: 065
     Dates: start: 20111101
  5. INSULIN [Concomitant]
     Indication: HYPERGLYCAEMIA
     Dosage: UNK
     Route: 065
     Dates: start: 20111101
  6. MEROPENEM [Concomitant]
     Indication: BACTERIAL INFECTION
     Dosage: UNK
     Route: 065
     Dates: start: 20111101
  7. MORPHINE [Concomitant]
     Indication: SEDATION
     Dosage: UNK
     Route: 065
     Dates: start: 20111222
  8. RIFAMPICINE [Concomitant]
     Indication: BACTERIAL INFECTION
     Dosage: UNK
     Route: 065
     Dates: start: 20111216
  9. PREDNISONE [Concomitant]
     Indication: IMMUNOSUPPRESSION
     Dosage: UNK
     Route: 065
     Dates: start: 20111101

REACTIONS (1)
  - Cardiac arrest [Fatal]
